FAERS Safety Report 22332666 (Version 1)
Quarter: 2023Q2

REPORT INFORMATION
  Report Type: Spontaneous
  Country: US (occurrence: None)
  Receive Date: 20230516
  Receipt Date: 20230516
  Transmission Date: 20230721
  Serious: Yes (Hospitalization)
  Sender: FDA-Public Use
  Company Number: None

PATIENT
  Age: 56 Year
  Sex: Female
  Weight: 79.38 kg

DRUGS (16)
  1. CYCLOPHOSPHAMIDE [Suspect]
     Active Substance: CYCLOPHOSPHAMIDE
     Indication: Plasma cell myeloma
     Dosage: FREQUENCY : WEEKLY;?
     Route: 048
     Dates: start: 20230225, end: 20230427
  2. ACYCLOVIR [Concomitant]
     Active Substance: ACYCLOVIR
  3. CIPRO [Concomitant]
     Active Substance: CIPROFLOXACIN HYDROCHLORIDE
  4. DECADRON [Concomitant]
     Active Substance: DEXAMETHASONE
  5. ENTOCORT [Concomitant]
     Active Substance: BUDESONIDE
  6. MAGNESIUM [Concomitant]
     Active Substance: MAGNESIUM
  7. MECLIZINE [Concomitant]
     Active Substance: MECLIZINE HYDROCHLORIDE
  8. MELATONIN [Concomitant]
     Active Substance: MELATONIN
  9. OMEPRAZOLE [Concomitant]
     Active Substance: OMEPRAZOLE
  10. PRENATAL LOW IRON VITAMIN [Concomitant]
  11. PROBIOTIC [Concomitant]
  12. PROCHLORPERAZINE [Concomitant]
     Active Substance: PROCHLORPERAZINE
  13. TRAZODONE [Concomitant]
     Active Substance: TRAZODONE HYDROCHLORIDE
  14. TYLENOL [Concomitant]
  15. ZOFRAN [Concomitant]
     Active Substance: ONDANSETRON HYDROCHLORIDE
  16. ZOVIRAX [Concomitant]
     Active Substance: ACYCLOVIR

REACTIONS (1)
  - Blood stem cell harvest [None]

NARRATIVE: CASE EVENT DATE: 20230508
